FAERS Safety Report 14963332 (Version 1)
Quarter: 2018Q2

REPORT INFORMATION
  Report Type: Report from Study
  Country: US (occurrence: US)
  Receive Date: 20180601
  Receipt Date: 20180601
  Transmission Date: 20180711
  Serious: Yes (Other)
  Sender: FDA-Public Use
  Company Number: US-EMD SERONO-E2B_90044799

PATIENT
  Sex: Male

DRUGS (2)
  1. REBIF [Suspect]
     Active Substance: INTERFERON BETA-1A
     Route: 058
  2. REBIF [Suspect]
     Active Substance: INTERFERON BETA-1A
     Indication: PRODUCT USED FOR UNKNOWN INDICATION
     Route: 058
     Dates: start: 20180418

REACTIONS (6)
  - Myalgia [Not Recovered/Not Resolved]
  - Adverse drug reaction [Unknown]
  - Poisoning [Unknown]
  - Cerebrovascular accident [Unknown]
  - Obsessive-compulsive disorder [Not Recovered/Not Resolved]
  - Paralysis [Not Recovered/Not Resolved]
